FAERS Safety Report 6028301-4 (Version None)
Quarter: 2009Q1

REPORT INFORMATION
  Report Type: 
  Country: None (occurrence: None)
  Receive Date: 20090106
  Receipt Date: 20081225
  Transmission Date: 20090719
  Serious: Yes (Other)
  Sender: FDA-Public Use
  Company Number: JP-BAYER-200813229BYL

PATIENT
  Age: 54 Year
  Sex: Male
  Weight: 61 kg

DRUGS (7)
  1. NEXAVAR [Suspect]
     Indication: RENAL CELL CARCINOMA STAGE IV
     Dosage: UNIT DOSE: 200 MG
     Route: 048
     Dates: start: 20080714, end: 20080809
  2. NEXAVAR [Suspect]
     Dosage: UNIT DOSE: 200 MG
     Route: 048
     Dates: start: 20080819, end: 20081110
  3. NEXAVAR [Suspect]
     Dosage: UNIT DOSE: 200 MG
     Route: 048
     Dates: start: 20081125
  4. CORTRIL [Concomitant]
     Dosage: UNIT DOSE: 10 MG
     Route: 048
  5. NEUFAN [Concomitant]
     Dosage: UNIT DOSE: 100 MG
     Route: 048
  6. ZYLORIC [Concomitant]
     Dosage: UNIT DOSE: 100 MG
     Route: 048
  7. ASTROFEN [Concomitant]
     Dosage: UNIT DOSE: 200 MG
     Route: 048

REACTIONS (6)
  - ABDOMINAL PAIN [None]
  - CONVULSION [None]
  - DECREASED APPETITE [None]
  - DIARRHOEA [None]
  - PALMAR-PLANTAR ERYTHRODYSAESTHESIA SYNDROME [None]
  - VOMITING [None]
